FAERS Safety Report 12540729 (Version 2)
Quarter: 2017Q1

REPORT INFORMATION
  Report Type: Spontaneous
  Country: GR (occurrence: GR)
  Receive Date: 20160708
  Receipt Date: 20170205
  Transmission Date: 20170428
  Serious: Yes (Life-Threatening, Hospitalization)
  Sender: FDA-Public Use
  Company Number: GR-TEVA-673933ISR

PATIENT
  Age: 72 Year
  Sex: Male

DRUGS (2)
  1. AMLODIPINE [Suspect]
     Active Substance: AMLODIPINE BESYLATE
     Indication: HYPERTENSION
     Route: 065
  2. VALSARTAN. [Concomitant]
     Active Substance: VALSARTAN

REACTIONS (14)
  - Hyperglycaemia [Unknown]
  - Tremor [Unknown]
  - Cardiac failure [Unknown]
  - Pulmonary embolism [Unknown]
  - Cardiovascular disorder [Unknown]
  - Renal impairment [Unknown]
  - Toxicity to various agents [Unknown]
  - Overdose [Unknown]
  - Hypotension [Recovered/Resolved]
  - Anaemia [Recovered/Resolved]
  - Hypoglycaemia [Unknown]
  - Pleural effusion [Unknown]
  - Muscular weakness [Unknown]
  - Shock [Recovered/Resolved]
